FAERS Safety Report 4894957-2 (Version None)
Quarter: 2006Q1

REPORT INFORMATION
  Report Type: 
  Country: None (occurrence: None)
  Receive Date: 20060130
  Receipt Date: 20050516
  Transmission Date: 20060701
  Serious: No
  Sender: FDA-Public Use
  Company Number: US-BRISTOL-MYERS SQUIBB COMPANY-12969341

PATIENT
  Age: 64 Year
  Sex: Female
  Weight: 71 kg

DRUGS (6)
  1. GLUCOPHAGE [Suspect]
     Indication: DIABETES MELLITUS NON-INSULIN-DEPENDENT
     Dosage: GLUCOPHAGE 500MG ONE TABLET BID, INITIATED IN 2000; IN JUL-2002 DOSE WAS SWITCHED TO 850MG BID
     Dates: start: 20000101
  2. GLYBURIDE [Concomitant]
  3. LESCOL [Concomitant]
  4. ACCUPRIL [Concomitant]
  5. AVANDIA [Concomitant]
  6. DIOVAN [Concomitant]

REACTIONS (2)
  - BLOOD GLUCOSE INCREASED [None]
  - MEDICATION ERROR [None]
